FAERS Safety Report 16467968 (Version 3)
Quarter: 2019Q3

REPORT INFORMATION
  Report Type: Report from Study
  Country: US (occurrence: US)
  Receive Date: 20190624
  Receipt Date: 20190925
  Transmission Date: 20191004
  Serious: Yes (Death, Hospitalization, Other)
  Sender: FDA-Public Use
  Company Number: US-ROCHE-2338795

PATIENT
  Age: 70 Year
  Sex: Female
  Weight: 81.8 kg

DRUGS (5)
  1. BEVACIZUMAB. [Suspect]
     Active Substance: BEVACIZUMAB
     Indication: OVARIAN CANCER
     Dosage: ON 09/MAY/2019, SHE RECEIVED THE MOST RECENT DOSE OF BEVACIZUMAB.?BEVACIZUMAB (RHUMAB VEGF) 10 MG/KG
     Route: 042
     Dates: start: 20181108
  2. CARBOPLATIN. [Concomitant]
     Active Substance: CARBOPLATIN
     Route: 065
     Dates: start: 201805, end: 201809
  3. TAXOL [Concomitant]
     Active Substance: PACLITAXEL
     Route: 065
     Dates: start: 201805, end: 201809
  4. ATEZOLIZUMAB. [Suspect]
     Active Substance: ATEZOLIZUMAB
     Indication: OVARIAN CANCER
     Dosage: ON 09/MAY/2019, SHE RECEIVED THE MOST RECENT DOSE OF ATEZOLIZUMAB.?ATEZOLIZUMAB (MPDL3280A) 800 MG I
     Route: 042
     Dates: start: 20181108
  5. LIPOSOMAL DOXORUBICIN HYDROCHLORIDE [Suspect]
     Active Substance: DOXORUBICIN HYDROCHLORIDE
     Indication: OVARIAN CANCER
     Dosage: ON 24/APR/2019, SHE RECEIVED THE MOST RECENT DOSE OF LIPOSOMAL DOXORUBICIN.?PLD 40 MG/M2 IV OVER 1 H
     Route: 042
     Dates: start: 20181108

REACTIONS (10)
  - Gastric perforation [Fatal]
  - Hypertension [Not Recovered/Not Resolved]
  - Respiratory failure [Not Recovered/Not Resolved]
  - Acute kidney injury [Not Recovered/Not Resolved]
  - Sepsis [Not Recovered/Not Resolved]
  - Pneumonitis [Not Recovered/Not Resolved]
  - Seizure [Not Recovered/Not Resolved]
  - Fatigue [Not Recovered/Not Resolved]
  - Troponin T increased [Not Recovered/Not Resolved]
  - Hyponatraemia [Not Recovered/Not Resolved]

NARRATIVE: CASE EVENT DATE: 20190513
